FAERS Safety Report 24939031 (Version 2)
Quarter: 2025Q2

REPORT INFORMATION
  Report Type: Spontaneous
  Country: US (occurrence: US)
  Receive Date: 20250206
  Receipt Date: 20250404
  Transmission Date: 20250717
  Serious: No
  Sender: PFIZER
  Company Number: US-PFIZER INC-202500024864

PATIENT
  Age: 33 Year
  Sex: Male
  Weight: 67.13 kg

DRUGS (9)
  1. VELSIPITY [Suspect]
     Active Substance: ETRASIMOD ARGININE
     Indication: Colitis ulcerative
     Dosage: 2 MG, 1X/DAY
     Route: 048
     Dates: start: 20250201
  2. SACCHAROMYCES CEREVISIAE [Concomitant]
     Active Substance: SACCHAROMYCES CEREVISIAE
     Indication: Colitis ulcerative
     Dosage: 5 BILLION CFU, 1 CAPSULE A DAY, DAILY
     Route: 048
     Dates: start: 202309
  3. HERBALS\TURMERIC [Concomitant]
     Active Substance: HERBALS\TURMERIC
     Indication: Colitis ulcerative
     Dosage: 2250 MG, DAILY (750 MG 3 CAPSULES)
     Dates: start: 202501
  4. VITAMIN C [Concomitant]
     Active Substance: ASCORBIC ACID
     Dosage: 500 MG, 1X/DAY
     Route: 048
  5. VITAMINS NOS [Concomitant]
     Active Substance: VITAMINS
  6. OMEGA-3 FATTY ACIDS [Concomitant]
     Active Substance: OMEGA-3 FATTY ACIDS
     Indication: Colitis ulcerative
     Dosage: UNK, 1X/DAY (ALGAE BASED)
     Route: 048
     Dates: start: 202501
  7. BREO ELLIPTA [Concomitant]
     Active Substance: FLUTICASONE FUROATE\VILANTEROL TRIFENATATE
     Indication: Asthma
     Dosage: UNK, 1X/DAY (200-25MCG PER DOSE)
     Route: 055
     Dates: start: 202411
  8. FLONASE SENSIMIST ALLERGY RELIEF [Concomitant]
     Active Substance: FLUTICASONE FUROATE
     Indication: Hypersensitivity
     Dosage: UNK, DAILY (27.5MCG PER SPRAY, DAILY, TWO SPRAYS PER NOSTRIL)
     Route: 045
     Dates: start: 202301
  9. CLARITIN [Concomitant]
     Active Substance: LORATADINE
     Indication: Hypersensitivity
     Route: 048
     Dates: start: 2020

REACTIONS (4)
  - Bradycardia [Recovered/Resolved]
  - Fatigue [Unknown]
  - Pharyngitis streptococcal [Unknown]
  - Sinusitis [Not Recovered/Not Resolved]

NARRATIVE: CASE EVENT DATE: 20250201
